FAERS Safety Report 21758834 (Version 1)
Quarter: 2022Q4

REPORT INFORMATION
  Report Type: Spontaneous
  Country: JP (occurrence: JP)
  Receive Date: 20221221
  Receipt Date: 20221221
  Transmission Date: 20230112
  Serious: Yes (Other)
  Sender: FDA-Public Use
  Company Number: JP-MSD-M2022-53335

PATIENT
  Age: 8 Decade

DRUGS (3)
  1. KEYTRUDA [Suspect]
     Active Substance: PEMBROLIZUMAB
     Indication: Laryngeal cancer
     Dosage: 200 MILLIGRAM, Q3W
     Route: 041
     Dates: start: 202207, end: 202208
  2. FLUOROURACIL [Concomitant]
     Active Substance: FLUOROURACIL
     Indication: Laryngeal cancer
     Dosage: UNK
     Route: 042
     Dates: start: 202207, end: 2022
  3. CISPLATIN [Concomitant]
     Active Substance: CISPLATIN
     Indication: Laryngeal cancer
     Dosage: UNK
     Route: 042
     Dates: start: 202207, end: 2022

REACTIONS (1)
  - Immune-mediated hepatic disorder [Not Recovered/Not Resolved]

NARRATIVE: CASE EVENT DATE: 20220901
